FAERS Safety Report 9646354 (Version 1)
Quarter: 2013Q4

REPORT INFORMATION
  Report Type: Report from Study
  Country: JP (occurrence: JP)
  Receive Date: 20131025
  Receipt Date: 20131025
  Transmission Date: 20140711
  Serious: Yes (Hospitalization)
  Sender: FDA-Public Use
  Company Number: JP-EISAI-201305186

PATIENT
  Age: 88 Year
  Sex: Female
  Weight: 46 kg

DRUGS (7)
  1. LUNESTA [Suspect]
     Indication: INSOMNIA
     Route: 048
     Dates: start: 20130415
  2. LUNESTA [Suspect]
     Indication: INSOMNIA
     Route: 048
     Dates: start: 20130408, end: 20130414
  3. AMOBAN [Concomitant]
     Indication: INSOMNIA
     Dates: end: 20130407
  4. ROZEREM [Concomitant]
     Indication: INSOMNIA
     Dates: end: 20130407
  5. GLACTIV [Concomitant]
     Indication: DIABETES MELLITUS
  6. ACTOS [Concomitant]
     Indication: DIABETES MELLITUS
     Dates: start: 20130408
  7. VOGLIBOSE [Concomitant]
     Indication: DIABETES MELLITUS
     Dates: start: 201303

REACTIONS (1)
  - Pneumonia [Recovered/Resolved]
